FAERS Safety Report 23953700 (Version 2)
Quarter: 2024Q2

REPORT INFORMATION
  Report Type: Report from Study
  Country: JP (occurrence: JP)
  Receive Date: 20240608
  Receipt Date: 20240620
  Transmission Date: 20240716
  Serious: Yes (Other)
  Sender: FDA-Public Use
  Company Number: JP-CHUGAI-2024019012AA

PATIENT
  Age: 72 Year
  Sex: Female
  Weight: 51.8 kg

DRUGS (35)
  1. POLIVY [Suspect]
     Active Substance: POLATUZUMAB VEDOTIN-PIIQ
     Indication: Diffuse large B-cell lymphoma
     Dosage: 89 MILLIGRAM
     Route: 065
     Dates: start: 20231206, end: 20231206
  2. POLIVY [Suspect]
     Active Substance: POLATUZUMAB VEDOTIN-PIIQ
     Dosage: 89 MILLIGRAM
     Route: 065
     Dates: start: 20240111, end: 20240111
  3. POLIVY [Suspect]
     Active Substance: POLATUZUMAB VEDOTIN-PIIQ
     Dosage: 89 MILLIGRAM
     Route: 065
     Dates: start: 20240202, end: 20240202
  4. POLIVY [Suspect]
     Active Substance: POLATUZUMAB VEDOTIN-PIIQ
     Dosage: 89 MILLIGRAM
     Route: 065
     Dates: start: 20240226, end: 20240226
  5. POLIVY [Suspect]
     Active Substance: POLATUZUMAB VEDOTIN-PIIQ
     Dosage: 89 MILLIGRAM
     Route: 065
     Dates: start: 20240508, end: 20240508
  6. RITUXAN [Suspect]
     Active Substance: RITUXIMAB
     Indication: Diffuse large B-cell lymphoma
     Dosage: 550 MILLIGRAM
     Route: 065
     Dates: start: 20240111, end: 20240111
  7. RITUXAN [Suspect]
     Active Substance: RITUXIMAB
     Dosage: 550 MILLIGRAM
     Route: 065
     Dates: start: 20240202, end: 20240202
  8. RITUXAN [Suspect]
     Active Substance: RITUXIMAB
     Dosage: 550 MILLIGRAM
     Route: 065
     Dates: start: 20240226, end: 20240226
  9. RITUXAN [Suspect]
     Active Substance: RITUXIMAB
     Dosage: 550 MILLIGRAM
     Route: 065
     Dates: start: 20240508, end: 20240508
  10. RITUXIMAB [Suspect]
     Active Substance: RITUXIMAB
     Indication: Diffuse large B-cell lymphoma
     Dosage: SUBSEQUENT DOSE WAS TAKEN ON 11-JAN-2024, 02-FEB-2024, 26-FEB-2024 AND 08-MAY-2024
     Route: 065
     Dates: start: 20231215, end: 20231215
  11. CYCLOPHOSPHAMIDE [Suspect]
     Active Substance: CYCLOPHOSPHAMIDE
     Indication: Diffuse large B-cell lymphoma
     Dosage: 750 MILLIGRAM
     Route: 065
     Dates: start: 20231205, end: 20231205
  12. CYCLOPHOSPHAMIDE [Suspect]
     Active Substance: CYCLOPHOSPHAMIDE
     Dosage: 750 MILLIGRAM
     Route: 065
     Dates: start: 20240111, end: 20240111
  13. CYCLOPHOSPHAMIDE [Suspect]
     Active Substance: CYCLOPHOSPHAMIDE
     Dosage: 750 MILLIGRAM
     Route: 065
     Dates: start: 20240202, end: 20240202
  14. CYCLOPHOSPHAMIDE [Suspect]
     Active Substance: CYCLOPHOSPHAMIDE
     Dosage: 750 MILLIGRAM
     Route: 065
     Dates: start: 20240226, end: 20240226
  15. CYCLOPHOSPHAMIDE [Suspect]
     Active Substance: CYCLOPHOSPHAMIDE
     Dosage: 750 MILLIGRAM
     Route: 065
     Dates: start: 20240508, end: 20240508
  16. DOXORUBICIN HYDROCHLORIDE [Suspect]
     Active Substance: DOXORUBICIN HYDROCHLORIDE
     Indication: Diffuse large B-cell lymphoma
     Route: 065
     Dates: start: 20231205, end: 20231205
  17. DOXORUBICIN HYDROCHLORIDE [Suspect]
     Active Substance: DOXORUBICIN HYDROCHLORIDE
     Route: 065
     Dates: start: 20240111, end: 20240111
  18. DOXORUBICIN HYDROCHLORIDE [Suspect]
     Active Substance: DOXORUBICIN HYDROCHLORIDE
     Route: 065
     Dates: start: 20240202, end: 20240202
  19. DOXORUBICIN HYDROCHLORIDE [Suspect]
     Active Substance: DOXORUBICIN HYDROCHLORIDE
     Route: 065
     Dates: start: 20240226, end: 20240226
  20. DOXORUBICIN HYDROCHLORIDE [Suspect]
     Active Substance: DOXORUBICIN HYDROCHLORIDE
     Route: 065
     Dates: start: 20240508, end: 20240508
  21. PREDNISOLONE [Suspect]
     Active Substance: PREDNISOLONE
     Indication: Diffuse large B-cell lymphoma
     Dosage: 100 MILLIGRAM
     Route: 065
     Dates: start: 20231205, end: 20231209
  22. PREDNISOLONE [Suspect]
     Active Substance: PREDNISOLONE
     Dosage: 100 MILLIGRAM
     Route: 065
     Dates: start: 20240111, end: 20240115
  23. PREDNISOLONE [Suspect]
     Active Substance: PREDNISOLONE
     Dosage: 100 MILLIGRAM
     Route: 065
     Dates: start: 20240202, end: 20240206
  24. PREDNISOLONE [Suspect]
     Active Substance: PREDNISOLONE
     Dosage: 100 MILLIGRAM
     Route: 065
     Dates: start: 20240226, end: 20240301
  25. PREDNISOLONE [Suspect]
     Active Substance: PREDNISOLONE
     Dosage: 100 MILLIGRAM
     Route: 065
     Dates: start: 20240508, end: 20240512
  26. PEGFILGRASTIM [Concomitant]
     Active Substance: PEGFILGRASTIM
     Dosage: UNK
  27. METHOTREXATE [Concomitant]
     Active Substance: METHOTREXATE
     Dosage: 15MG/DAY
     Route: 028
     Dates: start: 20231207, end: 20231207
  28. CYTARABINE [Concomitant]
     Active Substance: CYTARABINE
     Dosage: 40MG/DAY
     Route: 028
     Dates: start: 20231207, end: 20231207
  29. CYTARABINE [Concomitant]
     Active Substance: CYTARABINE
     Dosage: 40MG/DAY
     Route: 028
     Dates: start: 20240206, end: 20240206
  30. CYTARABINE [Concomitant]
     Active Substance: CYTARABINE
     Dosage: 40MG/DAY
     Route: 028
     Dates: start: 20240228, end: 20240228
  31. CYTARABINE [Concomitant]
     Active Substance: CYTARABINE
     Dosage: 40MG/DAY
     Route: 028
     Dates: start: 20240510, end: 20240510
  32. PREDONINE [Concomitant]
     Active Substance: PREDNISOLONE
     Route: 028
     Dates: start: 20231207, end: 20231207
  33. DEXAMETHASONE [Concomitant]
     Active Substance: DEXAMETHASONE
     Dosage: UNK
     Dates: start: 20240206, end: 20240206
  34. DEXAMETHASONE [Concomitant]
     Active Substance: DEXAMETHASONE
     Dosage: UNK
     Dates: start: 20240228, end: 20240228
  35. DEXAMETHASONE [Concomitant]
     Active Substance: DEXAMETHASONE
     Dosage: UNK
     Dates: start: 20240510, end: 20240510

REACTIONS (2)
  - Pericardial effusion [Not Recovered/Not Resolved]
  - Pneumonia fungal [Recovering/Resolving]

NARRATIVE: CASE EVENT DATE: 20240308
